FAERS Safety Report 10361878 (Version 1)
Quarter: 2014Q1

REPORT INFORMATION
  Report Type: Spontaneous
  Country: US (occurrence: None)
  Receive Date: 20140306
  Receipt Date: 20140306
  Transmission Date: 20141002
  Serious: Yes (Other)
  Sender: FDA-Public Use
  Company Number: 163-21880-13073683

PATIENT
  Age: 75 Year
  Sex: Male

DRUGS (1)
  1. REVLIMID [Suspect]
     Indication: PLASMA CELL MYELOMA
     Dosage: 28-JAN-2011 - TEMPORARILY INTERRUPTED?2.5 MG, 21 IN 21 D, PO
     Route: 048
     Dates: start: 20110128

REACTIONS (1)
  - Anaemia [None]
